FAERS Safety Report 23612711 (Version 1)
Quarter: 2024Q1

REPORT INFORMATION
  Report Type: Spontaneous
  Country: US (occurrence: US)
  Receive Date: 20240308
  Receipt Date: 20240308
  Transmission Date: 20240410
  Serious: No
  Sender: FDA-Public Use
  Company Number: US-PFIZER INC-202400058092

PATIENT
  Age: 70 Year
  Sex: Female
  Weight: 61.224 kg

DRUGS (3)
  1. ESTRING [Suspect]
     Active Substance: ESTRADIOL
     Indication: Atrophic vulvovaginitis
     Dosage: 7.5MCG PER DAY/ESTRING 7.5MCG/24HR VAGINAL SYSTEM
     Route: 067
     Dates: start: 20140127
  2. ESTRING [Suspect]
     Active Substance: ESTRADIOL
     Indication: Vaginal infection
  3. ESTRING [Suspect]
     Active Substance: ESTRADIOL
     Indication: Dyspareunia

REACTIONS (1)
  - Arthralgia [Unknown]
